FAERS Safety Report 13989598 (Version 1)
Quarter: 2017Q3

REPORT INFORMATION
  Report Type: Spontaneous
  Country: US (occurrence: US)
  Receive Date: 20170920
  Receipt Date: 20170920
  Transmission Date: 20171128
  Serious: No
  Sender: FDA-Public Use
  Company Number: US-AUROBINDO-AUR-APU-2017-18218

PATIENT
  Sex: Male

DRUGS (1)
  1. DEXAMFETAMINE TABLET [Suspect]
     Active Substance: DEXTROAMPHETAMINE
     Indication: BRAIN INJURY
     Dosage: 1 DF, ONCE A DAY
     Route: 065

REACTIONS (7)
  - Disturbance in attention [Recovered/Resolved]
  - Heart rate increased [Recovered/Resolved]
  - Nervousness [Recovered/Resolved]
  - Malaise [Recovered/Resolved]
  - Lethargy [Recovered/Resolved]
  - Dizziness [Recovered/Resolved]
  - Tremor [Recovered/Resolved]
